APPROVED DRUG PRODUCT: RIFAMPIN
Active Ingredient: RIFAMPIN
Strength: 600MG/VIAL
Dosage Form/Route: INJECTABLE;INJECTION
Application: A206736 | Product #001
Applicant: WATSON PHARMACEUTICALS INC AN INDIRECT WHOLLY OWNED SUB OF TEVA PHARMACEUTICALS USA INC
Approved: Jan 19, 2016 | RLD: No | RS: No | Type: DISCN